FAERS Safety Report 11151155 (Version 1)
Quarter: 2015Q2

REPORT INFORMATION
  Report Type: Spontaneous
  Country: CA (occurrence: CA)
  Receive Date: 20150601
  Receipt Date: 20150601
  Transmission Date: 20150821
  Serious: Yes (Hospitalization)
  Sender: FDA-Public Use
  Company Number: CA-TEVA-566060ACC

PATIENT
  Age: 67 Year
  Sex: Female
  Weight: 62.65 kg

DRUGS (9)
  1. VENLAFAXINE XR [Concomitant]
     Active Substance: VENLAFAXINE HYDROCHLORIDE
     Dosage: (UNKNOWN FORM STRENGTH)
     Route: 065
  2. PREDNISOLONE OPHTHALMIC SOLUTION [Suspect]
     Active Substance: PREDNISOLONE
     Indication: CATARACT OPERATION
     Dosage: 1 GTT DAILY;
     Route: 047
  3. PREDNISOLONE OPHTHALMIC SOLUTION [Suspect]
     Active Substance: PREDNISOLONE
     Indication: CATARACT OPERATION
     Dosage: 2 GTT DAILY;
     Route: 047
  4. PREDNISOLONE OPHTHALMIC SOLUTION [Suspect]
     Active Substance: PREDNISOLONE
     Indication: CATARACT OPERATION
     Dosage: 4 GTT DAILY;
     Route: 047
  5. NABILONE [Concomitant]
     Active Substance: NABILONE
     Dosage: UNKNOWN FORM STRENGTH
     Route: 065
  6. PREDNISOLONE OPHTHALMIC SOLUTION [Suspect]
     Active Substance: PREDNISOLONE
     Indication: CATARACT OPERATION
     Dosage: 3 GTT DAILY;
     Route: 047
  7. OXYCODONE [Concomitant]
     Active Substance: OXYCODONE
     Dosage: UNKNOWN FORM STRENGTH
     Route: 065
  8. PREDNISOLONE OPHTHALMIC SOLUTION [Suspect]
     Active Substance: PREDNISOLONE
     Indication: CATARACT OPERATION
     Dosage: 12 GTT DAILY;
     Route: 047
  9. QUETIAPINE [Concomitant]
     Active Substance: QUETIAPINE
     Dosage: UNKNOWN FORM STRENGTH
     Route: 065

REACTIONS (1)
  - Mania [Unknown]
